FAERS Safety Report 14364378 (Version 1)
Quarter: 2018Q1

REPORT INFORMATION
  Report Type: Spontaneous
  Country: US (occurrence: US)
  Receive Date: 20180106
  Receipt Date: 20180106
  Transmission Date: 20180509
  Serious: Yes (Hospitalization)
  Sender: FDA-Public Use
  Company Number: None

PATIENT
  Age: 7 Year
  Sex: Female
  Weight: 20.9 kg

DRUGS (2)
  1. ERWINIA ASPARAGINASE [Suspect]
     Active Substance: ASPARAGINASE ERWINIA CHRYSANTHEMI
     Dates: end: 20180104
  2. CYTARABINE. [Suspect]
     Active Substance: CYTARABINE
     Dates: end: 20180104

REACTIONS (3)
  - Lacrimation increased [None]
  - Photophobia [None]
  - Alanine aminotransferase increased [None]

NARRATIVE: CASE EVENT DATE: 20180102
